FAERS Safety Report 6903530-3 (Version None)
Quarter: 2010Q3

REPORT INFORMATION
  Report Type: 
  Country: None (occurrence: None)
  Receive Date: 20100803
  Receipt Date: 20081016
  Transmission Date: 20110219
  Serious: No
  Sender: FDA-Public Use
  Company Number: US-PFIZER INC-2008060308

PATIENT
  Sex: Female
  Weight: 81.65 kg

DRUGS (7)
  1. LYRICA [Suspect]
     Indication: FIBROMYALGIA
     Dates: start: 20070101, end: 20071001
  2. LYRICA [Suspect]
     Indication: POOR QUALITY SLEEP
  3. CYMBALTA [Concomitant]
  4. PROVIGIL [Concomitant]
  5. CLONAZEPAM [Concomitant]
  6. OXYCONTIN [Concomitant]
  7. AMBIEN [Concomitant]

REACTIONS (1)
  - PARAESTHESIA [None]
